FAERS Safety Report 24870426 (Version 1)
Quarter: 2025Q1

REPORT INFORMATION
  Report Type: Spontaneous
  Country: US (occurrence: None)
  Receive Date: 20250121
  Receipt Date: 20250121
  Transmission Date: 20250409
  Serious: No
  Sender: FDA-CTU
  Company Number: None

PATIENT
  Sex: Female

DRUGS (3)
  1. AMBRISENTAN [Suspect]
     Active Substance: AMBRISENTAN
     Indication: Pulmonary hypertension
     Dosage: FREQUENCY : DAILY;?
     Route: 048
  2. SILDENAFIL [Suspect]
     Active Substance: SILDENAFIL
  3. POTASSIUM BICARB/CHLORIDE [Concomitant]

REACTIONS (2)
  - Cardiac failure [None]
  - Therapy cessation [None]
